FAERS Safety Report 17445970 (Version 2)
Quarter: 2021Q2

REPORT INFORMATION
  Report Type: Spontaneous
  Country: US (occurrence: US)
  Receive Date: 20200221
  Receipt Date: 20210528
  Transmission Date: 20210716
  Serious: Yes (Other)
  Sender: FDA-Public Use
  Company Number: US-PFIZER INC-2020078561

PATIENT
  Age: 61 Year
  Sex: Female

DRUGS (5)
  1. PREMARIN [Suspect]
     Active Substance: ESTROGENS, CONJUGATED
     Indication: VULVOVAGINAL DRYNESS
     Dosage: THREE TIMES A WEEK
  2. COVID?19 VACCINE NOS. [Concomitant]
     Active Substance: COVID-19 VACCINE NOS
     Dosage: UNK
     Dates: start: 20210505
  3. PREMARIN [Suspect]
     Active Substance: ESTROGENS, CONJUGATED
     Indication: VULVOVAGINAL PAIN
     Dosage: 0.5G, ADMINISTER WITH APPLICATOR 2 TIMES PER WEEK
     Route: 067
  4. PREMARIN [Suspect]
     Active Substance: ESTROGENS, CONJUGATED
     Indication: MENOPAUSE
     Dosage: UNK
  5. COVID?19 VACCINE NOS. [Concomitant]
     Active Substance: COVID-19 VACCINE NOS
     Dosage: UNK
     Dates: start: 20210407

REACTIONS (15)
  - Cardiac disorder [Unknown]
  - Urinary tract infection [Unknown]
  - Diabetes mellitus [Unknown]
  - Upper respiratory tract infection [Unknown]
  - Pain [Unknown]
  - Uterine infection [Unknown]
  - Herpes zoster [Unknown]
  - Discomfort [Unknown]
  - Product prescribing error [Unknown]
  - Expired product administered [Unknown]
  - Illness [Unknown]
  - Nervousness [Unknown]
  - Depression [Unknown]
  - Off label use [Unknown]
  - Weight fluctuation [Unknown]
